FAERS Safety Report 8777479 (Version 3)
Quarter: 2013Q1

REPORT INFORMATION
  Report Type: Spontaneous
  Country: US (occurrence: US)
  Receive Date: 20120911
  Receipt Date: 20130329
  Transmission Date: 20140127
  Serious: Yes (Hospitalization)
  Sender: FDA-Public Use
  Company Number: US-B.I. PHARMACEUTICALS,INC./RIDGEFIELD-2012-BP-21400BP

PATIENT
  Age: 71 None
  Sex: Female
  Weight: 56.7 kg

DRUGS (22)
  1. PRADAXA [Suspect]
     Indication: ANTICOAGULANT THERAPY
     Dosage: 300 MG
     Route: 048
     Dates: start: 20110322, end: 20120208
  2. PRADAXA [Suspect]
     Indication: ATRIAL FIBRILLATION
  3. ADVAIR [Concomitant]
     Indication: ASTHMA
     Route: 055
  4. ATROVENT [Concomitant]
     Indication: DYSPNOEA
  5. ALBUTEROL [Concomitant]
     Indication: DYSPNOEA
  6. TENORMIN [Concomitant]
     Dosage: 12.5 MG
  7. VITAMIN C [Concomitant]
     Dosage: 500 MG
  8. ESTRADIOL [Concomitant]
     Dosage: 1 MG
  9. ZETIA [Concomitant]
  10. TAMBOCOR [Concomitant]
     Dosage: 150 MG
  11. LACTINEX [Concomitant]
  12. SYNTHROID [Concomitant]
     Dosage: 100 MG
  13. THERAGRAN [Concomitant]
  14. PROTONIX [Concomitant]
     Dosage: 40 MG
  15. PROBIOTIC [Concomitant]
  16. LYRICA [Concomitant]
     Dosage: 225 MG
  17. VYTORIN [Concomitant]
  18. CALCIUM AND VITAMIN D [Concomitant]
  19. GLUCOSAMINE/CHONDROITIN [Concomitant]
     Dosage: 1500 MG
  20. LIPOIC ACID [Concomitant]
     Dosage: 100 MG
  21. MULTIVITAMIN [Concomitant]
  22. VITAMIN B COMPLEX [Concomitant]

REACTIONS (4)
  - Lower gastrointestinal haemorrhage [Unknown]
  - Anaemia [Unknown]
  - Haemoptysis [Recovered/Resolved]
  - Iron deficiency anaemia [Unknown]
